FAERS Safety Report 6945021-X (Version None)
Quarter: 2010Q3

REPORT INFORMATION
  Report Type: 
  Country: None (occurrence: None)
  Receive Date: 20100827
  Receipt Date: 20100816
  Transmission Date: 20110219
  Serious: Yes (Other)
  Sender: FDA-Public Use
  Company Number: PHHY2010JP51299

PATIENT
  Age: 48 Year
  Sex: Female

DRUGS (4)
  1. CYCLOSPORINE [Suspect]
     Indication: POEMS SYNDROME
     Dosage: UNK
     Route: 048
  2. PREDNISOLONE [Concomitant]
     Indication: POEMS SYNDROME
  3. MELPHALAN [Concomitant]
     Indication: POEMS SYNDROME
  4. METHYLPREDNISOLONE [Concomitant]

REACTIONS (4)
  - CONDITION AGGRAVATED [None]
  - METASTASES TO LYMPH NODES [None]
  - PLASMACYTOMA [None]
  - STEM CELL TRANSPLANT [None]
